FAERS Safety Report 8037822-4 (Version None)
Quarter: 2012Q1

REPORT INFORMATION
  Report Type: 
  Country: None (occurrence: None)
  Receive Date: 20120111
  Receipt Date: 20120105
  Transmission Date: 20120608
  Serious: Yes (Death)
  Sender: FDA-Public Use
  Company Number: JP-PFIZER INC-2011314255

PATIENT
  Sex: Male

DRUGS (19)
  1. TETRAMIDE [Suspect]
     Indication: DEPRESSION
     Dosage: 10 MG, 1X/DAY
     Route: 048
     Dates: start: 20111125, end: 20111213
  2. PURSENNID [Concomitant]
     Indication: CONSTIPATION
     Dosage: 24 MG, 1X/DAY
     Route: 048
     Dates: start: 20110924, end: 20111213
  3. LEXOTAN [Suspect]
     Indication: DEPRESSION
     Dosage: 4 MG, AS NEEDED
     Route: 048
     Dates: start: 20111108, end: 20111202
  4. BROTIZOLAM [Concomitant]
     Indication: INSOMNIA
     Dosage: 0.25 MG, AS NEEDED
     Route: 048
     Dates: start: 20110924, end: 20111213
  5. OXINORM [Concomitant]
     Indication: CANCER PAIN
     Dosage: 10 MG, AS NEEDED
     Route: 048
     Dates: start: 20111105, end: 20111208
  6. MAGMITT [Concomitant]
     Indication: CONSTIPATION
     Dosage: 500 MG, 3X/DAY
     Route: 048
     Dates: start: 20110924, end: 20111213
  7. NEW LECICARBON [Concomitant]
     Indication: CONSTIPATION PROPHYLAXIS
     Dosage: 1 DF, AS NEEDED
     Route: 054
     Dates: start: 20111108, end: 20111213
  8. SUTENT [Suspect]
     Indication: RENAL CELL CARCINOMA
     Dosage: 37.5 MG, 1X/DAY
     Route: 048
     Dates: start: 20111027, end: 20111029
  9. LEXOTAN [Suspect]
     Dosage: 2 MG, 2X/DAY
     Route: 048
     Dates: start: 20111118, end: 20111202
  10. OXYCONTIN [Concomitant]
     Indication: CANCER PAIN
     Dosage: 40 MG, 2X/DAY
     Route: 048
     Dates: start: 20111105, end: 20111208
  11. SUTENT [Suspect]
     Dosage: 37.5 MG, 1X/DAY
     Route: 048
     Dates: start: 20111126, end: 20111129
  12. LOXOPROFEN SODIUM [Concomitant]
     Indication: CANCER PAIN
     Dosage: 60 MG, AS NEEDED
     Route: 048
     Dates: start: 20110924, end: 20111213
  13. REBAMIPIDE [Concomitant]
     Indication: GASTRITIS PROPHYLAXIS
     Dosage: 100 MG, AS NEEDED
     Route: 048
     Dates: start: 20110924, end: 20111213
  14. TEGRETOL [Concomitant]
     Indication: ANALGESIC INTERVENTION SUPPORTIVE THERAPY
     Dosage: 100 MG, 2X/DAY
     Route: 048
     Dates: start: 20110928, end: 20111213
  15. HYDROPHILIC PETROLATUM [Concomitant]
     Indication: ASTEATOSIS
     Dosage: UNK
     Route: 062
     Dates: start: 20111108, end: 20111213
  16. NOVAMIN [Concomitant]
     Indication: PROPHYLAXIS
     Dosage: 5 MG, 3X/DAY
     Route: 048
     Dates: start: 20111003, end: 20111213
  17. OMEPRAZOLE [Concomitant]
     Indication: GASTRITIS PROPHYLAXIS
     Dosage: 20 MG, 1X/DAY
     Route: 048
     Dates: start: 20111011, end: 20111213
  18. MYCOSPOR [Concomitant]
     Indication: PROPHYLAXIS
     Dosage: UNK
     Route: 062
     Dates: start: 20111102, end: 20111213
  19. AZUNOL [Concomitant]
     Indication: PROPHYLAXIS
     Dosage: UNK
     Route: 062
     Dates: start: 20111117, end: 20111213

REACTIONS (1)
  - INTERSTITIAL LUNG DISEASE [None]
